FAERS Safety Report 5985978-7 (Version None)
Quarter: 2008Q4

REPORT INFORMATION
  Report Type: 
  Country: None (occurrence: None)
  Receive Date: 20081205
  Receipt Date: 20081205
  Transmission Date: 20090506
  Serious: Yes (Hospitalization)
  Sender: FDA-Public Use
  Company Number: None

PATIENT
  Age: 79 Year
  Sex: Female
  Weight: 113 kg

DRUGS (2)
  1. HYDROCHLOROTHIAZIDE [Suspect]
     Indication: HYPERTENSION
     Dosage: 50 MG AM PO
     Route: 048
     Dates: start: 20080118, end: 20080801
  2. FUROSEMIDE [Suspect]
     Indication: CARDIAC FAILURE CONGESTIVE
     Dosage: 40 MG BID PO
     Route: 048
     Dates: start: 20080519, end: 20080801

REACTIONS (4)
  - DIZZINESS POSTURAL [None]
  - HYPOTENSION [None]
  - PRESYNCOPE [None]
  - SYNCOPE [None]
